FAERS Safety Report 8917380 (Version 1)
Quarter: 2012Q4

REPORT INFORMATION
  Report Type: 
  Country: JP (occurrence: JP)
  Receive Date: 20121120
  Receipt Date: 20121120
  Transmission Date: 20130627
  Serious: Yes (Hospitalization, Other)
  Sender: FDA-Public Use
  Company Number: JP-PFIZER INC-2011070959

PATIENT
  Age: 73 Year
  Sex: Female

DRUGS (1)
  1. MORPHINE SULFATE [Suspect]
     Indication: PAIN

REACTIONS (7)
  - Dermatitis exfoliative [Recovered/Resolved]
  - Pyrexia [Unknown]
  - Lymphadenopathy [Unknown]
  - Eosinophil count increased [Recovering/Resolving]
  - Blood immunoglobulin A increased [Recovering/Resolving]
  - Blood calcium decreased [Unknown]
  - Pruritus [Unknown]
